FAERS Safety Report 4389147-6 (Version None)
Quarter: 2004Q2

REPORT INFORMATION
  Report Type: 
  Country: None (occurrence: None)
  Receive Date: 20040630
  Receipt Date: 20040618
  Transmission Date: 20050107
  Serious: Yes (Other)
  Sender: FDA-Public Use
  Company Number: 200410485BCA

PATIENT
  Age: 15 Year
  Sex: Female

DRUGS (7)
  1. ASPIRIN [Suspect]
  2. NAPROXEN [Suspect]
  3. TOLMETIN SODIUM [Suspect]
  4. GOLD THERAPY [Concomitant]
  5. HYDROXYCHLOROQUINE SULFATE [Concomitant]
  6. PENICILLAMINE [Concomitant]
  7. PREDNISONE [Concomitant]

REACTIONS (1)
  - RENAL PAPILLARY NECROSIS [None]
